FAERS Safety Report 8388390-9 (Version None)
Quarter: 2012Q2

REPORT INFORMATION
  Report Type: 
  Country: None (occurrence: None)
  Receive Date: 20120525
  Receipt Date: 20120514
  Transmission Date: 20120825
  Serious: Yes (Hospitalization, Other)
  Sender: FDA-Public Use
  Company Number: US-ELI_LILLY_AND_COMPANY-US200805003020

PATIENT
  Sex: Female
  Weight: 65.76 kg

DRUGS (12)
  1. PLAQUENIL [Concomitant]
     Dosage: 400 MG, UNK
  2. SYNTHROID [Concomitant]
  3. EVOXAC [Concomitant]
  4. CYMBALTA [Suspect]
     Dosage: 60 MG, DAILY (1/D)
  5. PILOCARPINE [Concomitant]
     Dosage: 5 MG, UNK
  6. CYMBALTA [Suspect]
     Dosage: 90 MG, DAILY (1/D)
  7. CYMBALTA [Suspect]
     Dosage: 120 MG, DAILY (1/D)
     Route: 048
     Dates: start: 20070101
  8. ANTIDEPRESSANTS [Concomitant]
  9. FLEXERIL [Concomitant]
     Dosage: 10 MG, UNK
  10. NEXIUM [Concomitant]
  11. CYMBALTA [Suspect]
     Indication: FIBROMYALGIA
     Dosage: 30 MG, DAILY (1/D)
  12. ULTRAM [Concomitant]
     Dosage: UNK

REACTIONS (26)
  - GALLBLADDER OPERATION [None]
  - FEELING ABNORMAL [None]
  - ARTHRALGIA [None]
  - PANIC REACTION [None]
  - FEELING OF BODY TEMPERATURE CHANGE [None]
  - NIGHTMARE [None]
  - HYPERHIDROSIS [None]
  - MENSTRUATION IRREGULAR [None]
  - CHILLS [None]
  - DRY MOUTH [None]
  - GASTROINTESTINAL DISORDER [None]
  - MEDICATION ERROR [None]
  - PAIN IN EXTREMITY [None]
  - DYSPNOEA [None]
  - HOT FLUSH [None]
  - DRY EYE [None]
  - INSOMNIA [None]
  - VOMITING [None]
  - PROCEDURAL COMPLICATION [None]
  - DRUG INEFFECTIVE [None]
  - WITHDRAWAL SYNDROME [None]
  - INTERVERTEBRAL DISC PROTRUSION [None]
  - CONSTIPATION [None]
  - HEART RATE INCREASED [None]
  - WEIGHT DECREASED [None]
  - WEIGHT INCREASED [None]
